FAERS Safety Report 6247734-4 (Version None)
Quarter: 2009Q2

REPORT INFORMATION
  Report Type: 
  Country: None (occurrence: None)
  Receive Date: 20090626
  Receipt Date: 20090622
  Transmission Date: 20091009
  Serious: Yes (Death, Hospitalization, Other)
  Sender: FDA-Public Use
  Company Number: PHHY2009BR23914

PATIENT
  Sex: Male

DRUGS (4)
  1. FORASEQ [Suspect]
     Indication: RESPIRATORY DISORDER
     Dosage: UNK
     Dates: start: 20050101, end: 20090101
  2. ATROVENT [Concomitant]
  3. SERETIDE [Concomitant]
  4. LEXOTAN [Concomitant]

REACTIONS (5)
  - DEATH [None]
  - INFLUENZA [None]
  - OSTEOPOROSIS [None]
  - PNEUMONIA [None]
  - PSEUDOMONAS INFECTION [None]
